FAERS Safety Report 6400242-X (Version None)
Quarter: 2009Q4

REPORT INFORMATION
  Report Type: 
  Country: None (occurrence: None)
  Receive Date: 20091014
  Receipt Date: 20091005
  Transmission Date: 20100525
  Serious: Yes (Death)
  Sender: FDA-Public Use
  Company Number: CA-PFIZER INC-2009278437

PATIENT

DRUGS (1)
  1. LIPITOR [Suspect]

REACTIONS (1)
  - PANCREATIC CARCINOMA [None]
